FAERS Safety Report 13814682 (Version 1)
Quarter: 2017Q3

REPORT INFORMATION
  Report Type: Spontaneous
  Country: US (occurrence: US)
  Receive Date: 20170729
  Receipt Date: 20170729
  Transmission Date: 20171127
  Serious: No
  Sender: FDA-Public Use
  Company Number: None

PATIENT
  Age: 54 Year
  Sex: Female
  Weight: 59.85 kg

DRUGS (5)
  1. GABAPENTIN. [Suspect]
     Active Substance: GABAPENTIN
     Indication: NEURALGIA
     Dosage: ?          QUANTITY:120 TABLET(S);OTHER ROUTE:MOUTH?
     Route: 048
  2. FISH OIL [Concomitant]
     Active Substance: FISH OIL
  3. ESSENTIAL ONE VITAMIN [Concomitant]
  4. CANE [Concomitant]
  5. PAROXETINE. [Concomitant]
     Active Substance: PAROXETINE

REACTIONS (3)
  - Headache [None]
  - Loss of personal independence in daily activities [None]
  - Pain [None]
